FAERS Safety Report 4480288-1 (Version None)
Quarter: 2004Q3

REPORT INFORMATION
  Report Type: 
  Country: None (occurrence: None)
  Receive Date: 20040923
  Receipt Date: 20040602
  Transmission Date: 20050211
  Serious: No
  Sender: FDA-Public Use
  Company Number: USA040566833

PATIENT
  Age: 64 Year
  Sex: Female
  Weight: 63 kg

DRUGS (5)
  1. FORTEO [Suspect]
     Indication: OSTEOPOROSIS
     Dosage: 20 UG/1 DAY
     Dates: start: 20040430
  2. LIPITOR [Concomitant]
  3. POTASSIUM CHLORIDE [Concomitant]
  4. CITRACAL (CALCIUM CITRATE) [Concomitant]
  5. VERELAN (VERAPAMIL HYDROCHLORIDE) [Concomitant]

REACTIONS (3)
  - ASTHENIA [None]
  - DIZZINESS [None]
  - ELECTROCARDIOGRAM ABNORMAL [None]
